FAERS Safety Report 6893221-X (Version None)
Quarter: 2010Q3

REPORT INFORMATION
  Report Type: 
  Country: None (occurrence: None)
  Receive Date: 20100731
  Receipt Date: 20090706
  Transmission Date: 20110219
  Serious: Yes (Other)
  Sender: FDA-Public Use
  Company Number: US-PFIZER INC-2009214960

PATIENT
  Sex: Female
  Weight: 104 kg

DRUGS (5)
  1. AMLODIPINE BESYLATE [Suspect]
     Indication: HYPERTENSION
     Dosage: 10 MG, UNK
     Dates: start: 20070701, end: 20071001
  2. NORVASC [Suspect]
     Dosage: 10 MG, UNK
  3. SYNTHROID [Suspect]
     Indication: THYROID DISORDER
  4. TOPROL-XL [Concomitant]
     Dosage: UNK
  5. LISINOPRIL [Concomitant]
     Dosage: UNK

REACTIONS (6)
  - DIZZINESS [None]
  - HEADACHE [None]
  - HEART RATE INCREASED [None]
  - HYPERTENSION [None]
  - HYPOAESTHESIA FACIAL [None]
  - MALAISE [None]
